FAERS Safety Report 8266347-6 (Version None)
Quarter: 2012Q2

REPORT INFORMATION
  Report Type: 
  Country: None (occurrence: None)
  Receive Date: 20120406
  Receipt Date: 20120323
  Transmission Date: 20120825
  Serious: Yes (Hospitalization, Other)
  Sender: FDA-Public Use
  Company Number: CHPA2012US004670

PATIENT
  Age: 34 Year
  Sex: Female

DRUGS (2)
  1. EXCEDRIN (MIGRAINE) [Suspect]
     Indication: HEADACHE
     Dosage: 2 DF, PRN
     Route: 048
     Dates: start: 20040101
  2. PROPRANOLOL [Concomitant]
     Indication: BLOOD PRESSURE
     Dosage: UNK, UNK
     Route: 048

REACTIONS (9)
  - FATIGUE [None]
  - DEHYDRATION [None]
  - DIZZINESS [None]
  - ULCER [None]
  - WEIGHT DECREASED [None]
  - HEADACHE [None]
  - FEELING ABNORMAL [None]
  - HYPERHIDROSIS [None]
  - BLOOD PRESSURE ABNORMAL [None]
